FAERS Safety Report 23700512 (Version 1)
Quarter: 2024Q2

REPORT INFORMATION
  Report Type: Spontaneous
  Country: US (occurrence: US)
  Receive Date: 20240403
  Receipt Date: 20240403
  Transmission Date: 20240715
  Serious: Yes (Other)
  Sender: FDA-Public Use
  Company Number: HIKM2401693

PATIENT

DRUGS (1)
  1. PREDNISONE [Suspect]
     Active Substance: PREDNISONE
     Indication: Transplant
     Dosage: UNKNOWN
     Route: 065

REACTIONS (3)
  - Fear of disease [Unknown]
  - Immunodeficiency [Unknown]
  - Adverse drug reaction [Unknown]
